FAERS Safety Report 15518582 (Version 5)
Quarter: 2018Q4

REPORT INFORMATION
  Report Type: Spontaneous
  Country: US (occurrence: US)
  Receive Date: 20181017
  Receipt Date: 20181218
  Transmission Date: 20190205
  Serious: Yes (Hospitalization)
  Sender: FDA-Public Use
  Company Number: US-ACTELION-A-NJ2018-179816

PATIENT
  Age: 45 Year
  Sex: Male
  Weight: 106.58 kg

DRUGS (2)
  1. OPSUMIT [Concomitant]
     Active Substance: MACITENTAN
  2. VELETRI [Suspect]
     Active Substance: EPOPROSTENOL
     Indication: PULMONARY ARTERIAL HYPERTENSION
     Dosage: 6 NG/KG, PER MIN
     Route: 042

REACTIONS (15)
  - Injection site pain [Unknown]
  - Nausea [Unknown]
  - Pain [Unknown]
  - Hypoaesthesia [Unknown]
  - Dizziness [Unknown]
  - Allergy to vaccine [Unknown]
  - Back pain [Unknown]
  - Immunisation [Unknown]
  - Headache [Unknown]
  - Dyspnoea exertional [Unknown]
  - Pain in extremity [Unknown]
  - Radiculopathy [Unknown]
  - Arthralgia [Unknown]
  - Chills [Unknown]
  - Pyrexia [Unknown]

NARRATIVE: CASE EVENT DATE: 201809
